FAERS Safety Report 17577854 (Version 1)
Quarter: 2020Q1

REPORT INFORMATION
  Report Type: Spontaneous
  Country: US (occurrence: US)
  Receive Date: 20200324
  Receipt Date: 20200324
  Transmission Date: 20200409
  Serious: Yes (Other)
  Sender: FDA-Public Use
  Company Number: US-ALLERGAN-2012084US

PATIENT
  Sex: Female

DRUGS (1)
  1. REFRESH CELLUVISC [Suspect]
     Active Substance: CARBOXYMETHYLCELLULOSE SODIUM
     Indication: DRY EYE
     Dosage: 1 DROP IN EACH EYE EVERY TWO HOURS
     Route: 047

REACTIONS (4)
  - Corneal dystrophy [Unknown]
  - Eye irritation [Unknown]
  - Eye pain [Unknown]
  - Ocular discomfort [Unknown]
